FAERS Safety Report 16778277 (Version 1)
Quarter: 2019Q3

REPORT INFORMATION
  Report Type: Report from Study
  Country: None (occurrence: US)
  Receive Date: 20190905
  Receipt Date: 20190905
  Transmission Date: 20191005
  Serious: Yes (Other)
  Sender: FDA-Public Use
  Company Number: US-ABBVIE-19K-163-2909843-00

PATIENT
  Age: 16 Year
  Sex: Female

DRUGS (1)
  1. LUPRON DEPOT-PED [Suspect]
     Active Substance: LEUPROLIDE ACETATE
     Indication: PRODUCT USED FOR UNKNOWN INDICATION
     Route: 065

REACTIONS (5)
  - Adenoidectomy [Unknown]
  - Depression [Unknown]
  - Suicidal ideation [Unknown]
  - Tonsillectomy [Unknown]
  - Gender dysphoria [Unknown]

NARRATIVE: CASE EVENT DATE: 2019
